FAERS Safety Report 9486702 (Version 2)
Quarter: 2013Q3

REPORT INFORMATION
  Report Type: Report from Study
  Country: US (occurrence: US)
  Receive Date: 20130829
  Receipt Date: 20130829
  Transmission Date: 20140515
  Serious: Yes (Hospitalization)
  Sender: FDA-Public Use
  Company Number: US-ASTRAZENECA-2010SE61037

PATIENT
  Age: 51 Year
  Sex: Female
  Weight: 88.5 kg

DRUGS (25)
  1. SEROQUEL XR [Suspect]
     Indication: AFFECTIVE DISORDER
     Route: 048
     Dates: start: 201008
  2. SEROQUEL XR [Suspect]
     Indication: BIPOLAR I DISORDER
     Route: 048
     Dates: start: 201008
  3. SEROQUEL XR [Suspect]
     Indication: AFFECTIVE DISORDER
     Route: 048
  4. SEROQUEL XR [Suspect]
     Indication: BIPOLAR I DISORDER
     Route: 048
  5. SEROQUEL XR [Suspect]
     Indication: AFFECTIVE DISORDER
     Route: 048
  6. SEROQUEL XR [Suspect]
     Indication: BIPOLAR I DISORDER
     Route: 048
  7. SEROQUEL XR [Suspect]
     Indication: AFFECTIVE DISORDER
     Route: 048
  8. SEROQUEL XR [Suspect]
     Indication: BIPOLAR I DISORDER
     Route: 048
  9. SEROQUEL XR [Suspect]
     Indication: AFFECTIVE DISORDER
     Dosage: DISCONTINUED DEC2010 OR JAN2011
     Route: 048
  10. SEROQUEL XR [Suspect]
     Indication: BIPOLAR I DISORDER
     Dosage: DISCONTINUED DEC2010 OR JAN2011
     Route: 048
  11. LISINOPRIL [Suspect]
     Route: 048
  12. CRESTOR [Suspect]
     Route: 048
  13. SPIRIVA [Concomitant]
  14. FLOVENT [Concomitant]
  15. TRIAZEDONE [Concomitant]
  16. MIRTAZAPINE [Concomitant]
  17. HYDROXYZINE PAM [Concomitant]
  18. CLONAZEPAM [Concomitant]
  19. LODINE [Concomitant]
  20. REQUIP [Concomitant]
  21. PHENERGAN [Concomitant]
  22. BACLOFEN [Concomitant]
  23. HYDROCODONE [Concomitant]
  24. ALBUTEROL [Concomitant]
  25. SOMA [Concomitant]

REACTIONS (11)
  - Transient ischaemic attack [Unknown]
  - Aphasia [Unknown]
  - Thought blocking [Recovered/Resolved]
  - Dysphemia [Recovered/Resolved]
  - Speech disorder [Unknown]
  - Feeling abnormal [Unknown]
  - Feeling of body temperature change [Unknown]
  - Adverse event [Unknown]
  - Nervousness [Unknown]
  - Dyskinesia [Recovered/Resolved]
  - Drug withdrawal syndrome [Recovered/Resolved]
